FAERS Safety Report 4939474-6 (Version None)
Quarter: 2006Q1

REPORT INFORMATION
  Report Type: 
  Country: None (occurrence: None)
  Receive Date: 20060310
  Receipt Date: 20060301
  Transmission Date: 20060701
  Serious: Yes (Hospitalization)
  Sender: FDA-Public Use
  Company Number: US-JNJFOC-20060300557

PATIENT
  Sex: Female
  Weight: 39.92 kg

DRUGS (7)
  1. REMICADE [Suspect]
     Route: 042
  2. REMICADE [Suspect]
     Route: 042
  3. REMICADE [Suspect]
     Indication: CROHN'S DISEASE
     Route: 042
  4. STEROIDS [Concomitant]
     Indication: PREMEDICATION
     Route: 048
  5. BENADRYL [Concomitant]
     Indication: PREMEDICATION
     Route: 042
  6. HYDRATION [Concomitant]
     Indication: PREMEDICATION
     Route: 042
  7. CORTICOSTEROIDS [Concomitant]
     Indication: PREMEDICATION
     Route: 042

REACTIONS (10)
  - ARTHRALGIA [None]
  - CONTUSION [None]
  - FATIGUE [None]
  - HAEMORRHAGE [None]
  - HEADACHE [None]
  - HOSPITALISATION [None]
  - OEDEMA PERIPHERAL [None]
  - PERIORBITAL OEDEMA [None]
  - PHARYNGOLARYNGEAL PAIN [None]
  - VISION BLURRED [None]
